FAERS Safety Report 16214333 (Version 4)
Quarter: 2023Q2

REPORT INFORMATION
  Report Type: Spontaneous
  Country: US (occurrence: US)
  Receive Date: 20190418
  Receipt Date: 20230421
  Transmission Date: 20230722
  Serious: Yes (Death, Other)
  Sender: FDA-Public Use
  Company Number: US-PFIZER INC-2019166613

PATIENT
  Age: 52 Year
  Sex: Female

DRUGS (36)
  1. PROTONIX [Suspect]
     Active Substance: PANTOPRAZOLE SODIUM
     Indication: Gastrooesophageal reflux disease
     Dosage: UNK
     Dates: start: 201002, end: 201501
  2. PROTONIX [Suspect]
     Active Substance: PANTOPRAZOLE SODIUM
     Dosage: 40 MG, 1X/DAY
     Dates: start: 2010, end: 2014
  3. NEXIUM [Suspect]
     Active Substance: ESOMEPRAZOLE MAGNESIUM
     Indication: Gastrooesophageal reflux disease
     Dosage: 40 MG, 1X/DAY
     Dates: start: 201002, end: 201501
  4. NEXIUM 24HR [Suspect]
     Active Substance: ESOMEPRAZOLE MAGNESIUM
     Indication: Gastrooesophageal reflux disease
     Dosage: AS DIRECTED
     Dates: start: 2014, end: 2015
  5. PRILOSEC OTC [Suspect]
     Active Substance: OMEPRAZOLE MAGNESIUM
     Indication: Gastrooesophageal reflux disease
     Dosage: AS DIRECTED
     Dates: start: 2010, end: 2015
  6. LISINOPRIL [Concomitant]
     Active Substance: LISINOPRIL
     Indication: Blood pressure abnormal
     Dosage: UNK
     Dates: start: 200704, end: 201207
  7. AMLODIPINE [Concomitant]
     Active Substance: AMLODIPINE BESYLATE
     Indication: Analgesic therapy
     Dosage: UNK
     Dates: start: 200902, end: 201510
  8. ACETAMINOPHEN\HYDROCODONE [Concomitant]
     Active Substance: ACETAMINOPHEN\HYDROCODONE
     Indication: Analgesic therapy
     Dosage: UNK
     Dates: start: 200902, end: 201711
  9. HYDRALAZINE [Concomitant]
     Active Substance: HYDRALAZINE HYDROCHLORIDE
     Indication: Blood pressure abnormal
     Dosage: UNK
     Dates: start: 201404, end: 201510
  10. FUROSEMIDE [Concomitant]
     Active Substance: FUROSEMIDE
     Indication: Blood pressure abnormal
     Dosage: UNK
     Dates: start: 201402, end: 201510
  11. CIPROFLOXACIN [Concomitant]
     Active Substance: CIPROFLOXACIN
     Indication: Infection
     Dosage: UNK
     Dates: start: 201705
  12. OXYCODONE AND ACETAMINOPHEN [Concomitant]
     Active Substance: ACETAMINOPHEN\OXYCODONE HYDROCHLORIDE
     Indication: Analgesic therapy
     Dosage: UNK
     Dates: start: 201606, end: 201611
  13. GABAPENTIN [Concomitant]
     Active Substance: GABAPENTIN
     Indication: Pain
     Dosage: UNK
     Dates: start: 2012, end: 2017
  14. PROZAC [Concomitant]
     Active Substance: FLUOXETINE HYDROCHLORIDE
     Indication: Depression
     Dosage: UNK
     Dates: start: 2015, end: 2017
  15. PROZAC [Concomitant]
     Active Substance: FLUOXETINE HYDROCHLORIDE
     Indication: Anxiety
  16. ZOFRAN [Concomitant]
     Active Substance: ONDANSETRON HYDROCHLORIDE
     Indication: Depression
     Dosage: UNK
     Dates: start: 2016, end: 2017
  17. KEFLEX [Concomitant]
     Active Substance: CEPHALEXIN
     Indication: Infection
     Dosage: UNK
     Dates: start: 2017
  18. PRISTIQ EXTENDED-RELEASE [Concomitant]
     Active Substance: DESVENLAFAXINE SUCCINATE
     Indication: Depression
     Dosage: UNK
     Dates: start: 2010
  19. ACCUPRIL [Concomitant]
     Active Substance: QUINAPRIL HYDROCHLORIDE
     Indication: Hypertension
     Dosage: UNK
     Dates: start: 2010, end: 2012
  20. NORVASC [Concomitant]
     Active Substance: AMLODIPINE BESYLATE
     Indication: Hypertension
     Dosage: UNK
     Dates: start: 2010, end: 2015
  21. METOPROLOL TARTRATE [Concomitant]
     Active Substance: METOPROLOL TARTRATE
     Indication: Hypertension
     Dosage: UNK
     Dates: start: 2010
  22. HYDROCHLOROTHIAZIDE [Concomitant]
     Active Substance: HYDROCHLOROTHIAZIDE
     Indication: Hypertension
     Dosage: UNK
     Dates: start: 2007, end: 2013
  23. PAROXETINE [Concomitant]
     Active Substance: PAROXETINE
     Indication: Anxiety
     Dosage: UNK
     Dates: start: 2007, end: 2011
  24. LOVENOX [Concomitant]
     Active Substance: ENOXAPARIN SODIUM
     Indication: Thrombosis
     Dosage: UNK
     Dates: start: 2013, end: 2014
  25. KLONOPIN [Concomitant]
     Active Substance: CLONAZEPAM
     Indication: Anxiety
     Dosage: UNK
     Dates: start: 2016, end: 2017
  26. MELATONIN [Concomitant]
     Active Substance: MELATONIN
     Indication: Insomnia
     Dosage: UNK
     Dates: start: 2016, end: 2017
  27. TYLENOL [Concomitant]
     Active Substance: ACETAMINOPHEN
     Indication: Analgesic therapy
     Dosage: UNK
     Dates: start: 201411, end: 201711
  28. VITAMIN D2 [Concomitant]
     Active Substance: ERGOCALCIFEROL
     Indication: Vitamin supplementation
     Dosage: UNK
     Dates: start: 201411, end: 201711
  29. IBUPROFEN [Concomitant]
     Active Substance: IBUPROFEN
     Indication: Analgesic therapy
     Dosage: UNK
     Dates: start: 201109
  30. FAMOTIDINE [Concomitant]
     Active Substance: FAMOTIDINE
     Dosage: UNK
     Dates: start: 2015
  31. ZANTAC 150 (RANITIDINE HYDROCHLORIDE) [Concomitant]
     Active Substance: RANITIDINE HYDROCHLORIDE
     Dosage: UNK
     Dates: start: 2015
  32. RANITIDINE [Concomitant]
     Active Substance: RANITIDINE
     Dosage: UNK
     Dates: start: 2014, end: 2017
  33. PEPCID [Concomitant]
     Active Substance: FAMOTIDINE
     Dosage: UNK
     Dates: start: 2015
  34. MAALOX ANTACID [Concomitant]
     Active Substance: ALUMINUM HYDROXIDE\DIMETHICONE\MAGNESIUM HYDROXIDE
     Indication: Antacid therapy
     Dosage: UNK, AS NEEDED, 2-4 TSP AS NEEDED
     Dates: start: 201302, end: 201502
  35. MYLANTA [Concomitant]
     Active Substance: ALUMINUM HYDROXIDE\DIMETHICONE\MAGNESIUM HYDROXIDE
     Indication: Antacid therapy
     Dosage: UNK, AS NEEDED, 1-3 TABLETS AS NEEDED
     Dates: start: 201302, end: 201502
  36. TUMS [Concomitant]
     Active Substance: CALCIUM CARBONATE
     Indication: Antacid therapy
     Dosage: UNK, AS NEEDED, 1-2 TABLETS AS NEEDED
     Dates: start: 201302, end: 201502

REACTIONS (4)
  - Death [Fatal]
  - Chronic kidney disease [Unknown]
  - Acute kidney injury [Unknown]
  - End stage renal disease [Unknown]

NARRATIVE: CASE EVENT DATE: 20140101
